FAERS Safety Report 17650619 (Version 1)
Quarter: 2020Q2

REPORT INFORMATION
  Report Type: Report from Study
  Country: DE (occurrence: DE)
  Receive Date: 20200409
  Receipt Date: 20200409
  Transmission Date: 20200713
  Serious: Yes (Hospitalization, Other)
  Sender: FDA-Public Use
  Company Number: DE-TEVA-2020-DE-1168835

PATIENT
  Age: 71 Year
  Sex: Male

DRUGS (1)
  1. COPAXONE [Suspect]
     Active Substance: GLATIRAMER ACETATE
     Indication: MULTIPLE SCLEROSIS
     Dosage: 20 MILLIGRAM DAILY;
     Route: 058
     Dates: start: 20120417

REACTIONS (6)
  - Pneumonia aspiration [Recovered/Resolved]
  - Atrial fibrillation [Recovered/Resolved]
  - Vomiting [Recovered/Resolved]
  - Respiratory failure [Recovered/Resolved]
  - Aspiration [Recovered/Resolved]
  - Nausea [Recovered/Resolved]

NARRATIVE: CASE EVENT DATE: 20190502
